FAERS Safety Report 6558642-3 (Version None)
Quarter: 2010Q1

REPORT INFORMATION
  Report Type: 
  Country: None (occurrence: None)
  Receive Date: 20100129
  Receipt Date: 20100119
  Transmission Date: 20100710
  Serious: Yes (Other)
  Sender: FDA-Public Use
  Company Number: JP-WATSON-2010-00757

PATIENT
  Age: 28 Year
  Sex: Male

DRUGS (2)
  1. CYCLOSPORINE [Suspect]
     Indication: MYELODYSPLASTIC SYNDROME
     Dosage: 300 MG, DAILY
     Route: 048
     Dates: start: 19980501
  2. CYCLOSPORINE [Suspect]
     Dosage: 50 MG, DAILY
     Route: 048

REACTIONS (2)
  - CONDITION AGGRAVATED [None]
  - FAMILIAL MEDITERRANEAN FEVER [None]
